FAERS Safety Report 9728395 (Version 1)
Quarter: 2013Q4

REPORT INFORMATION
  Report Type: Spontaneous
  Country: CA (occurrence: CA)
  Receive Date: 20131204
  Receipt Date: 20131204
  Transmission Date: 20140711
  Serious: Yes (Other)
  Sender: FDA-Public Use
  Company Number: CA-ASTELLAS-2013US012479

PATIENT
  Sex: Female

DRUGS (1)
  1. ADVAGRAF [Suspect]
     Indication: RENAL TRANSPLANT
     Dosage: 4 MG, UNKNOWN/D
     Route: 048

REACTIONS (1)
  - Transplant failure [Unknown]
